FAERS Safety Report 24095306 (Version 1)
Quarter: 2024Q3

REPORT INFORMATION
  Report Type: Spontaneous
  Country: US (occurrence: US)
  Receive Date: 20240716
  Receipt Date: 20240716
  Transmission Date: 20241017
  Serious: Yes (Hospitalization, Other)
  Sender: STRIDES
  Company Number: US-STRIDES ARCOLAB LIMITED-2024SP008489

PATIENT
  Sex: Female
  Weight: 66 kg

DRUGS (14)
  1. TACROLIMUS [Suspect]
     Active Substance: TACROLIMUS
     Indication: Immunosuppressant drug therapy
     Dosage: UNK
     Route: 065
  2. TACROLIMUS [Suspect]
     Active Substance: TACROLIMUS
     Indication: Pancreas islet cell transplant
  3. AZATHIOPRINE [Suspect]
     Active Substance: AZATHIOPRINE
     Indication: Immunosuppressant drug therapy
     Dosage: 125 MILLIGRAM
     Route: 065
  4. AZATHIOPRINE [Suspect]
     Active Substance: AZATHIOPRINE
     Indication: Pancreas islet cell transplant
  5. MYCOPHENOLATE MOFETIL [Suspect]
     Active Substance: MYCOPHENOLATE MOFETIL
     Indication: Immunosuppressant drug therapy
     Dosage: UNK
     Route: 065
  6. MYCOPHENOLATE MOFETIL [Suspect]
     Active Substance: MYCOPHENOLATE MOFETIL
     Indication: Pancreas islet cell transplant
  7. INSULIN NOS [Suspect]
     Active Substance: INSULIN NOS
     Indication: Type 1 diabetes mellitus
     Dosage: UNK, QD (5-10UNITS/DAY IN THE FIRST TRIMESTER)
     Route: 065
  8. INSULIN NOS [Suspect]
     Active Substance: INSULIN NOS
     Dosage: UNK, QD (15-45 UNITS/DAY; IN THE SECOND TRIMESTER)
     Route: 065
  9. INSULIN NOS [Suspect]
     Active Substance: INSULIN NOS
     Dosage: UNK, QD (35-70UNITS/DAY IN THE THIRD TRIMESTER)
     Route: 065
  10. ASPIRIN [Suspect]
     Active Substance: ASPIRIN
     Indication: Prophylaxis
     Dosage: 81 MILLIGRAM, QD
     Route: 065
  11. THYMOCYTE IMMUNE GLOBULIN NOS [Concomitant]
     Active Substance: THYMOCYTE IMMUNE GLOBULIN NOS
     Indication: Immunosuppressant drug therapy
     Dosage: UNK
     Route: 065
  12. THYMOCYTE IMMUNE GLOBULIN NOS [Concomitant]
     Active Substance: THYMOCYTE IMMUNE GLOBULIN NOS
     Indication: Pancreas islet cell transplant
  13. REPARIXIN [Concomitant]
     Active Substance: REPARIXIN
     Indication: Immunosuppressant drug therapy
     Dosage: UNK
     Route: 065
  14. REPARIXIN [Concomitant]
     Active Substance: REPARIXIN
     Indication: Pancreas islet cell transplant

REACTIONS (4)
  - Pre-eclampsia [Recovered/Resolved]
  - Premature delivery [Unknown]
  - Maternal exposure during pregnancy [Unknown]
  - Off label use [Unknown]
